FAERS Safety Report 13293815 (Version 1)
Quarter: 2017Q1

REPORT INFORMATION
  Report Type: Spontaneous
  Country: US (occurrence: US)
  Receive Date: 20170303
  Receipt Date: 20170303
  Transmission Date: 20170428
  Serious: Yes (Other)
  Sender: FDA-Public Use
  Company Number: US-BAYER-2017-038925

PATIENT
  Sex: Male

DRUGS (2)
  1. AFRIN NO DRIP ORIGINAL PUMP MIST [Suspect]
     Active Substance: OXYMETAZOLINE HYDROCHLORIDE
     Indication: SLEEP DISORDER THERAPY
     Dosage: UNK, QID
     Route: 045
  2. AFRIN ORIGINAL [Suspect]
     Active Substance: OXYMETAZOLINE HYDROCHLORIDE
     Route: 065

REACTIONS (3)
  - Product use issue [Not Recovered/Not Resolved]
  - Product use issue [None]
  - Drug dependence [Not Recovered/Not Resolved]
